FAERS Safety Report 7306419-3 (Version None)
Quarter: 2011Q1

REPORT INFORMATION
  Report Type: 
  Country: None (occurrence: None)
  Receive Date: 20110222
  Receipt Date: 20110217
  Transmission Date: 20110831
  Serious: Yes (Other)
  Sender: FDA-Public Use
  Company Number: JP-PFIZER INC-2011027528

PATIENT
  Age: 43 Year
  Sex: Female

DRUGS (14)
  1. ATARAX [Suspect]
     Dosage: 25MG/DAY
     Route: 042
     Dates: start: 20110129, end: 20110129
  2. BETAMETHASONE [Concomitant]
     Dosage: 1 DF, 2X/DAY
     Route: 048
  3. NEO-MINOPHAGEN C [Concomitant]
     Dosage: UNK
     Route: 042
  4. ONON [Concomitant]
  5. ATARAX [Suspect]
     Indication: URTICARIA
     Dosage: 25MG/DAY
     Route: 042
     Dates: start: 20110121, end: 20110121
  6. ACINON [Concomitant]
     Dosage: UNK
  7. ALLEGRA [Concomitant]
     Dosage: UNK
  8. MYSLEE [Concomitant]
  9. ZYRTEC [Concomitant]
     Dosage: UNK
  10. MEILAX [Concomitant]
  11. ADOAIR [Concomitant]
  12. THEO-DUR [Concomitant]
  13. ATARAX [Suspect]
     Dosage: 25MG/DAY
     Route: 042
     Dates: start: 20110205, end: 20110205
  14. XYZAL [Concomitant]
     Dosage: UNK

REACTIONS (2)
  - MUSCLE DISORDER [None]
  - HYPOAESTHESIA [None]
